FAERS Safety Report 10064885 (Version 1)
Quarter: 2014Q2

REPORT INFORMATION
  Report Type: Spontaneous
  Country: US (occurrence: None)
  Receive Date: 20140407
  Receipt Date: 20140407
  Transmission Date: 20141212
  Serious: Yes (Life-Threatening, Hospitalization)
  Sender: FDA-Public Use
  Company Number: None

PATIENT
  Age: 67 Year
  Sex: Male
  Weight: 105.9 kg

DRUGS (1)
  1. SULFAMETHOXAZOLE/TRIMETHOPRIM [Suspect]
     Indication: OSTEOMYELITIS
     Route: 048
     Dates: start: 20131219, end: 20131227

REACTIONS (5)
  - Renal failure acute [None]
  - Hyponatraemia [None]
  - Hyperkalaemia [None]
  - Dyspnoea [None]
  - Hyporesponsive to stimuli [None]
